FAERS Safety Report 4510649-3 (Version None)
Quarter: 2004Q4

REPORT INFORMATION
  Report Type: 
  Country: None (occurrence: None)
  Receive Date: 20041122
  Receipt Date: 20041110
  Transmission Date: 20050328
  Serious: Yes (Death)
  Sender: FDA-Public Use
  Company Number: GBWYE191710NOV04

PATIENT
  Age: 39 Year
  Sex: Female

DRUGS (5)
  1. EFFEXOR [Suspect]
     Dosage: SEE IMAGE
     Dates: start: 20010201
  2. EFFEXOR XR [Suspect]
     Dosage: 150 MG
  3. DALMANE [Concomitant]
  4. RISPERDAL [Concomitant]
  5. CHLORPROMAZINE [Concomitant]

REACTIONS (1)
  - CHOKING [None]
